FAERS Safety Report 9178907 (Version 1)
Quarter: 2012Q4

REPORT INFORMATION
  Report Type: 
  Country: US (occurrence: US)
  Receive Date: 20121029
  Receipt Date: 20121029
  Transmission Date: 20130627
  Serious: Yes (Other)
  Sender: FDA-Public Use
  Company Number: US-JNJFOC-20121013474

PATIENT
  Age: 58 Year
  Sex: Male
  Weight: 74.84 kg

DRUGS (2)
  1. ZYRTEC IR [Suspect]
     Route: 048
  2. ZYRTEC IR [Suspect]
     Indication: MULTIPLE ALLERGIES
     Dosage: once last night
     Route: 048
     Dates: start: 20121018, end: 20121019

REACTIONS (1)
  - Restless legs syndrome [Recovered/Resolved]
